FAERS Safety Report 8789569 (Version 2)
Quarter: 2012Q4

REPORT INFORMATION
  Report Type: Spontaneous
  Country: DK (occurrence: None)
  Receive Date: 20120905
  Receipt Date: 20121001
  Transmission Date: 20130627
  Serious: Yes (Other)
  Sender: FDA-Public Use
  Company Number: 2012MA010590

PATIENT
  Age: 27 Year
  Sex: Male

DRUGS (2)
  1. METOCLOPRAMIDE TABLETS USP, 10 MG (PUREPAC) [Suspect]
     Indication: NAUSEA
     Dates: start: 20120806, end: 20120808
  2. CIPRALEX [Concomitant]

REACTIONS (10)
  - Panic attack [None]
  - Crying [None]
  - Decreased interest [None]
  - Feeling abnormal [None]
  - Fear [None]
  - Dry mouth [None]
  - Decreased appetite [None]
  - Suicidal ideation [None]
  - Impaired work ability [None]
  - Akathisia [None]
